FAERS Safety Report 18248511 (Version 1)
Quarter: 2020Q3

REPORT INFORMATION
  Report Type: Spontaneous
  Country: KE (occurrence: KE)
  Receive Date: 20200909
  Receipt Date: 20200909
  Transmission Date: 20201103
  Serious: Yes (Other)
  Sender: FDA-Public Use
  Company Number: KE-JNJFOC-20200903805

PATIENT
  Age: 28 Year
  Sex: Male

DRUGS (2)
  1. CLEXANE [Concomitant]
     Active Substance: ENOXAPARIN SODIUM
     Dosage: 60 MG, BID
     Route: 058
  2. XARELTO [Suspect]
     Active Substance: RIVAROXABAN
     Indication: DEEP VEIN THROMBOSIS
     Route: 048

REACTIONS (3)
  - Pulmonary embolism [Unknown]
  - Hypotension [Unknown]
  - Tachycardia [Unknown]

NARRATIVE: CASE EVENT DATE: 2020
